FAERS Safety Report 5113072-6 (Version None)
Quarter: 2006Q3

REPORT INFORMATION
  Report Type: 
  Country: None (occurrence: None)
  Receive Date: 20060920
  Receipt Date: 20060907
  Transmission Date: 20061208
  Serious: Yes (Hospitalization, Other)
  Sender: FDA-Public Use
  Company Number: 2006109240

PATIENT
  Age: 66 Year
  Sex: Female
  Weight: 90.7194 kg

DRUGS (12)
  1. NORVASC [Suspect]
     Indication: HYPERTENSION
     Dosage: 10 MG (10 MG, 1 IN D)
  2. CELEBREX [Suspect]
     Indication: POSTOPERATIVE CARE
     Dosage: 2 IN 1 D
  3. PREDNISONE TAB [Suspect]
     Indication: SWELLING
  4. TRAZODONE HCL [Concomitant]
  5. LEVOTHYROXINE SODIUM [Concomitant]
  6. PAXIL [Concomitant]
  7. PREMARIN [Concomitant]
  8. KLOR-CON [Concomitant]
  9. PROTONIX [Concomitant]
  10. VITAMINS (VITAMINS) [Concomitant]
  11. CALCIUM (CALCIUM) [Concomitant]
  12. GLUCOSAMINE SULFATE (GLUCOSAMINE SULFATE) [Concomitant]

REACTIONS (7)
  - EXOSTOSIS [None]
  - GENERALISED OEDEMA [None]
  - MUSCLE SPASMS [None]
  - OEDEMA PERIPHERAL [None]
  - PAIN IN EXTREMITY [None]
  - PULMONARY OEDEMA [None]
  - SPINAL FUSION SURGERY [None]
